FAERS Safety Report 25939869 (Version 1)
Quarter: 2025Q4

REPORT INFORMATION
  Report Type: Spontaneous
  Country: US (occurrence: US)
  Receive Date: 20251020
  Receipt Date: 20251020
  Transmission Date: 20260118
  Serious: Yes (Death, Hospitalization)
  Sender: HIKMA
  Company Number: US-HIKMA PHARMACEUTICALS USA INC.-US-H14001-25-11298

PATIENT
  Age: 76 Year
  Sex: Female

DRUGS (1)
  1. GANCICLOVIR [Suspect]
     Active Substance: GANCICLOVIR
     Indication: Human herpesvirus 6 infection
     Dosage: UNKNOWN
     Route: 042

REACTIONS (1)
  - Drug ineffective [Fatal]
